FAERS Safety Report 12437243 (Version 2)
Quarter: 2016Q2

REPORT INFORMATION
  Report Type: Spontaneous
  Country: US (occurrence: US)
  Receive Date: 20160606
  Receipt Date: 20160606
  Transmission Date: 20160815
  Serious: Yes (Other)
  Sender: FDA-Public Use
  Company Number: US-BAYER-2016-100389

PATIENT
  Sex: Female

DRUGS (25)
  1. PROVENTIL [Concomitant]
     Active Substance: ALBUTEROL
     Dosage: 2 DF, Q4HR (AS NEEDED)
     Route: 045
     Dates: start: 20150901
  2. ALLOPURINOL. [Concomitant]
     Active Substance: ALLOPURINOL
     Dosage: 1 DF, QD
     Route: 048
     Dates: start: 20160217
  3. CYMBALTA [Concomitant]
     Active Substance: DULOXETINE HYDROCHLORIDE
     Dosage: 1 DF, QD
     Route: 048
     Dates: start: 20160127
  4. ZITHROMAX [Concomitant]
     Active Substance: AZITHROMYCIN DIHYDRATE
     Dosage: 2 DF, QD
     Route: 048
     Dates: start: 20160323
  5. ZITHROMAX [Concomitant]
     Active Substance: AZITHROMYCIN DIHYDRATE
     Dosage: 1 DF, QD
     Route: 048
     Dates: start: 20160324, end: 20160327
  6. MONTELUKAST [Concomitant]
     Active Substance: MONTELUKAST SODIUM
     Dosage: 1 DF, QPM
     Route: 048
     Dates: start: 20151014
  7. ALPRAZOLAM. [Concomitant]
     Active Substance: ALPRAZOLAM
     Indication: ANXIETY
     Dosage: 1 DF, TID (AS NEEDED)
     Route: 048
     Dates: start: 20160127
  8. ATORVASTATIN [Concomitant]
     Active Substance: ATORVASTATIN
     Dosage: 1 DF, QD
     Route: 048
     Dates: start: 20151030
  9. JANUVIA [Concomitant]
     Active Substance: SITAGLIPTIN PHOSPHATE
     Dosage: 1 DF, QD
     Route: 048
     Dates: start: 20160127
  10. NYSTATIN W/TRIAMCINOLONE [NYSTATIN,TRIAMCINOLONE ACETONIDE] [Concomitant]
     Dosage: UNK, BID
     Dates: start: 20160205
  11. VITAMIN D3 [Concomitant]
     Active Substance: CHOLECALCIFEROL
     Dosage: 1 DF, QD
     Route: 048
     Dates: start: 20150602
  12. LYRICA [Concomitant]
     Active Substance: PREGABALIN
     Dosage: 1 DF, TID
     Route: 048
     Dates: start: 20151214
  13. OMEPRAZOLE. [Concomitant]
     Active Substance: OMEPRAZOLE
     Dosage: 1 DF, QD (EVERY MORNING)
     Dates: start: 20160127
  14. XGEVA [Concomitant]
     Active Substance: DENOSUMAB
     Dosage: UNK
     Dates: start: 20150306
  15. ANASTROZOLE. [Concomitant]
     Active Substance: ANASTROZOLE
     Dosage: 1 DF, QD
     Route: 048
     Dates: start: 20150928
  16. FENOFIBRATE. [Concomitant]
     Active Substance: FENOFIBRATE
     Dosage: 1 DF, QD
     Route: 048
     Dates: start: 20150713
  17. FUROSEMIDE. [Concomitant]
     Active Substance: FUROSEMIDE
     Dosage: 1 DF, QAM
     Dates: start: 20150921
  18. HUMALOG [Concomitant]
     Active Substance: INSULIN LISPRO
     Dosage: 70 UNITS WITH MEALS ALSO SLIDING SCALE 5 UNITS/50}150 MEALS + AT BED
     Route: 058
     Dates: start: 20151124
  19. LISINOPRIL. [Concomitant]
     Active Substance: LISINOPRIL
     Dosage: 1 DF, QD
     Route: 048
     Dates: start: 20160216
  20. BAYER GENUINE ASPIRIN [Suspect]
     Active Substance: ASPIRIN
     Dosage: UNK
  21. SPIRONOLACTONE. [Concomitant]
     Active Substance: SPIRONOLACTONE
     Dosage: 1 DF, QD
     Route: 048
     Dates: start: 20160216
  22. TRAMADOL. [Concomitant]
     Active Substance: TRAMADOL
     Indication: PAIN
     Dosage: 1-2 DF, PRN (EVERY 6 HOURS)
     Route: 048
     Dates: start: 20151030
  23. BYSTOLIC [Concomitant]
     Active Substance: NEBIVOLOL HYDROCHLORIDE
     Dosage: 1 DF, QD
     Route: 048
     Dates: start: 20151201
  24. FLUCONAZOLE. [Concomitant]
     Active Substance: FLUCONAZOLE
     Dosage: UNK
     Route: 048
     Dates: start: 20160205
  25. GABAPENTIN. [Concomitant]
     Active Substance: GABAPENTIN
     Dosage: 2 DF, TID
     Route: 048
     Dates: start: 20160216

REACTIONS (1)
  - Anaphylactic reaction [None]
